FAERS Safety Report 23039460 (Version 1)
Quarter: 2023Q4

REPORT INFORMATION
  Report Type: Spontaneous
  Country: US (occurrence: US)
  Receive Date: 20231006
  Receipt Date: 20231006
  Transmission Date: 20240110
  Serious: No
  Sender: FDA-Public Use
  Company Number: US-Merz Pharmaceuticals GmbH-23-03005

PATIENT
  Sex: Female

DRUGS (4)
  1. XEOMIN [Suspect]
     Active Substance: INCOBOTULINUMTOXINA
     Indication: Neuromuscular blocking therapy
  2. XEOMIN [Suspect]
     Active Substance: INCOBOTULINUMTOXINA
     Route: 030
     Dates: start: 20230815, end: 20230815
  3. BOTOX [Concomitant]
     Active Substance: ONABOTULINUMTOXINA
  4. DYSPORT [Concomitant]
     Active Substance: ABOBOTULINUMTOXINA

REACTIONS (11)
  - Brain fog [Unknown]
  - Vision blurred [Unknown]
  - Vertigo [Unknown]
  - Fatigue [Unknown]
  - Migraine [Unknown]
  - Anxiety [Unknown]
  - Muscle spasms [Unknown]
  - Asthenia [Unknown]
  - Therapeutic response decreased [Unknown]
  - Injection site pain [Unknown]
  - Off label use [Unknown]

NARRATIVE: CASE EVENT DATE: 20230101
